FAERS Safety Report 14617845 (Version 1)
Quarter: 2018Q1

REPORT INFORMATION
  Report Type: Spontaneous
  Country: US (occurrence: US)
  Receive Date: 20180309
  Receipt Date: 20180309
  Transmission Date: 20180509
  Serious: No
  Sender: FDA-Public Use
  Company Number: US-GLAXOSMITHKLINE-US2018038003

PATIENT

DRUGS (1)
  1. NICODERM CQ [Suspect]
     Active Substance: NICOTINE
     Indication: SMOKING CESSATION THERAPY
     Dosage: UNK

REACTIONS (7)
  - Nightmare [Unknown]
  - Wrong technique in product usage process [Unknown]
  - Tension [Recovered/Resolved]
  - Thinking abnormal [Unknown]
  - Asthenia [Unknown]
  - Anger [Recovered/Resolved]
  - Arthritis [Unknown]
